FAERS Safety Report 5427664-8 (Version None)
Quarter: 2007Q3

REPORT INFORMATION
  Report Type: 
  Country: None (occurrence: None)
  Receive Date: 20070823
  Receipt Date: 20070808
  Transmission Date: 20080115
  Serious: Yes (Hospitalization, Other)
  Sender: FDA-Public Use
  Company Number: A-CH2007-17334

PATIENT
  Age: 25 Year
  Sex: Male

DRUGS (1)
  1. TRACLEER [Suspect]
     Indication: PULMONARY HYPERTENSION
     Dosage: ORAL
     Route: 048

REACTIONS (4)
  - CONDITION AGGRAVATED [None]
  - HAEMOGLOBIN ABNORMAL [None]
  - HYPOGLYCAEMIA [None]
  - THROMBOCYTOPENIA [None]
